FAERS Safety Report 13611595 (Version 2)
Quarter: 2017Q3

REPORT INFORMATION
  Report Type: Spontaneous
  Country: US (occurrence: US)
  Receive Date: 20170605
  Receipt Date: 20170711
  Transmission Date: 20171127
  Serious: No
  Sender: FDA-Public Use
  Company Number: US-BRISTOL-MYERS SQUIBB COMPANY-BMS-2017-048887

PATIENT
  Sex: Male
  Weight: 126.53 kg

DRUGS (1)
  1. YERVOY [Suspect]
     Active Substance: IPILIMUMAB
     Indication: MALIGNANT MELANOMA
     Dosage: 1250 MG, Q3WK
     Route: 042
     Dates: start: 20170418

REACTIONS (2)
  - Diarrhoea [Unknown]
  - Prescribed overdose [Unknown]
